FAERS Safety Report 5891752-2 (Version None)
Quarter: 2008Q3

REPORT INFORMATION
  Report Type: 
  Country: None (occurrence: None)
  Receive Date: 20080908
  Receipt Date: 20080717
  Transmission Date: 20090109
  Serious: No
  Sender: FDA-Public Use
  Company Number: 002#2#2007-00157

PATIENT
  Age: 76 Year
  Sex: Male
  Weight: 95.2554 kg

DRUGS (16)
  1. NEUPRO [Suspect]
     Indication: PARKINSON'S DISEASE
     Dosage: 2MG/24H, 1 IN 1 D, TRANSDERMAL : 6MG/24H, 1 IN 1 D, TRANSDERMAL
     Route: 062
     Dates: start: 20070801
  2. NEUPRO [Suspect]
     Indication: PARKINSON'S DISEASE
     Dosage: 2MG/24H, 1 IN 1 D, TRANSDERMAL : 6MG/24H, 1 IN 1 D, TRANSDERMAL
     Route: 062
     Dates: start: 20070810
  3. ACIPHEX [Concomitant]
  4. COZAAR [Concomitant]
  5. DIGOXIN [Concomitant]
  6. FOSAMAX [Concomitant]
  7. HUMULIN [Concomitant]
  8. KLOR-CON [Concomitant]
  9. RANITIDINE [Concomitant]
  10. WARFARIN SODIUM [Concomitant]
  11. ZOCOR [Concomitant]
  12. IRON PILLS [Concomitant]
  13. MULTI-VITAMINS [Concomitant]
  14. VITAMIN E [Concomitant]
  15. TYLENOL (CAPLET) [Concomitant]
  16. BUMETANIDE [Concomitant]

REACTIONS (2)
  - ANXIETY [None]
  - INSOMNIA [None]
